FAERS Safety Report 6463588-5 (Version None)
Quarter: 2009Q4

REPORT INFORMATION
  Report Type: 
  Country: None (occurrence: None)
  Receive Date: 20091130
  Receipt Date: 20091130
  Transmission Date: 20100525
  Serious: Yes (Other)
  Sender: FDA-Public Use
  Company Number: None

PATIENT
  Age: 31 Year
  Sex: Female
  Weight: 113.3993 kg

DRUGS (1)
  1. MIRENA [Suspect]
     Indication: CONTRACEPTION
     Dates: start: 20080101

REACTIONS (4)
  - DEVICE EXPULSION [None]
  - DYSMENORRHOEA [None]
  - MEDICAL DEVICE COMPLICATION [None]
  - MENORRHAGIA [None]
